FAERS Safety Report 11852303 (Version 1)
Quarter: 2015Q4

REPORT INFORMATION
  Report Type: Spontaneous
  Country: US (occurrence: US)
  Receive Date: 20151218
  Receipt Date: 20151218
  Transmission Date: 20160305
  Serious: No
  Sender: FDA-Public Use
  Company Number: US-GLAXOSMITHKLINE-US2015177875

PATIENT
  Sex: Male

DRUGS (1)
  1. FLONASE [Suspect]
     Active Substance: FLUTICASONE PROPIONATE
     Indication: SINUS HEADACHE
     Dosage: 120 COUNT,3 PACK,UNK
     Dates: start: 201511

REACTIONS (4)
  - Epistaxis [Recovering/Resolving]
  - Application site scab [Recovering/Resolving]
  - Laceration [Unknown]
  - Product use issue [Unknown]
